FAERS Safety Report 6866297-3 (Version None)
Quarter: 2010Q2

REPORT INFORMATION
  Report Type: 
  Country: None (occurrence: None)
  Receive Date: 20100601
  Receipt Date: 20100520
  Transmission Date: 20101027
  Serious: No
  Sender: FDA-Public Use
  Company Number: 2010-00459

PATIENT
  Age: 66 Year
  Sex: Male
  Weight: 77.1115 kg

DRUGS (1)
  1. ZICAM COLD REMEDY GEL SWABS [Suspect]
     Dosage: 12 HRS APART X 2 DOSES
     Dates: start: 20100516, end: 20100516

REACTIONS (2)
  - AGEUSIA [None]
  - ANOSMIA [None]
